FAERS Safety Report 9127089 (Version 1)
Quarter: 2013Q1

REPORT INFORMATION
  Report Type: Spontaneous
  Country: US (occurrence: US)
  Receive Date: 20130125
  Receipt Date: 20130125
  Transmission Date: 20140127
  Serious: Yes (Death)
  Sender: FDA-Public Use
  Company Number: PHHY2013US006979

PATIENT
  Age: 18 Year
  Sex: Male

DRUGS (4)
  1. VALPROIC ACID [Suspect]
  2. CHLORPROMAZINE [Suspect]
  3. QUETIAPINE [Suspect]
  4. ESCITALOPRAM [Suspect]

REACTIONS (1)
  - Death [Fatal]
